FAERS Safety Report 6601589-4 (Version None)
Quarter: 2010Q1

REPORT INFORMATION
  Report Type: 
  Country: None (occurrence: None)
  Receive Date: 20100225
  Receipt Date: 20091209
  Transmission Date: 20100710
  Serious: No
  Sender: FDA-Public Use
  Company Number: US-KINGPHARMUSA00001-K200901534

PATIENT
  Age: 56 Year
  Sex: Male

DRUGS (4)
  1. FLECTOR [Suspect]
     Dosage: UNK, PRN
     Route: 061
     Dates: end: 20091210
  2. OXYCODONE HCL [Concomitant]
     Dosage: 5 MG, Q4H
     Route: 048
  3. XANAX [Concomitant]
     Dosage: 2 MG, TID
     Route: 048
  4. SYNTHROID [Concomitant]
     Indication: HYPOTHYROIDISM
     Dosage: 125 MCG, QD
     Route: 048

REACTIONS (2)
  - DYSARTHRIA [None]
  - HYPOAESTHESIA [None]
